FAERS Safety Report 4509495-6 (Version None)
Quarter: 2004Q4

REPORT INFORMATION
  Report Type: 
  Country: None (occurrence: None)
  Receive Date: 20041119
  Receipt Date: 20041101
  Transmission Date: 20050328
  Serious: Yes (Other)
  Sender: FDA-Public Use
  Company Number: US_010260764

PATIENT
  Age: 73 Year
  Sex: Female
  Weight: 61 kg

DRUGS (1)
  1. EVISTA [Suspect]
     Indication: OSTEOPOROSIS PROPHYLAXIS
     Dosage: 60 MG/1 DAY
     Dates: start: 19980101

REACTIONS (3)
  - HOT FLUSH [None]
  - SALIVARY GLAND CANCER [None]
  - THYROID GLAND CANCER [None]
